FAERS Safety Report 21519964 (Version 1)
Quarter: 2022Q4

REPORT INFORMATION
  Report Type: Spontaneous
  Country: US (occurrence: US)
  Receive Date: 20221028
  Receipt Date: 20221028
  Transmission Date: 20230113
  Serious: Yes (Other)
  Sender: FDA-Public Use
  Company Number: US-Amarin Pharma, Inc.-2022AMR001307

PATIENT
  Sex: Male

DRUGS (1)
  1. VASCEPA [Suspect]
     Active Substance: ICOSAPENT ETHYL
     Indication: Cardiac discomfort

REACTIONS (5)
  - Prostate cancer [Recovering/Resolving]
  - Rectal haemorrhage [Recovered/Resolved]
  - Radiation proctitis [Recovering/Resolving]
  - Haemoglobin decreased [Recovering/Resolving]
  - Food allergy [Recovering/Resolving]

NARRATIVE: CASE EVENT DATE: 20220101
